FAERS Safety Report 9321615 (Version 5)
Quarter: 2013Q3

REPORT INFORMATION
  Report Type: Spontaneous
  Country: DE (occurrence: DE)
  Receive Date: 20130531
  Receipt Date: 20130809
  Transmission Date: 20140515
  Serious: Yes (Hospitalization, Other)
  Sender: FDA-Public Use
  Company Number: DE-ABBOTT-13P-062-1096956-00

PATIENT
  Age: 49 Year
  Sex: Male

DRUGS (4)
  1. ENANTONE MONATS DEPOT [Suspect]
     Indication: ANTIANDROGEN THERAPY
     Route: 058
     Dates: start: 20080829
  2. CALCIUM [Concomitant]
     Indication: OSTEOPOROSIS
     Route: 065
     Dates: start: 20080829
  3. COLECALCIFEROL [Concomitant]
     Indication: OSTEOPOROSIS
     Route: 065
     Dates: start: 20080829
  4. OMEPRAZOL [Concomitant]
     Indication: PRODUCT USED FOR UNKNOWN INDICATION
     Route: 065
     Dates: start: 20130131

REACTIONS (5)
  - Nephrolithiasis [Unknown]
  - Renal cyst [Not Recovered/Not Resolved]
  - Prostatic obstruction [Unknown]
  - Osteoporosis [Not Recovered/Not Resolved]
  - Off label use [Unknown]
